FAERS Safety Report 4820244-4 (Version None)
Quarter: 2005Q4

REPORT INFORMATION
  Report Type: 
  Country: None (occurrence: None)
  Receive Date: 20051011
  Receipt Date: 20050727
  Transmission Date: 20060501
  Serious: Yes (Other)
  Sender: FDA-Public Use
  Company Number: 2005US000999

PATIENT
  Sex: Male

DRUGS (8)
  1. AMBISOME [Suspect]
     Indication: MENINGITIS CRYPTOCOCCAL
     Dosage: IV NOS
     Route: 042
     Dates: start: 20050608
  2. TRUVADA [Suspect]
     Dosage: SEE IMAGE
     Dates: start: 20050303, end: 20050607
  3. TRUVADA [Suspect]
     Dosage: SEE IMAGE
     Dates: start: 20050608, end: 20050625
  4. TRUVADA [Suspect]
     Dosage: SEE IMAGE
     Dates: start: 20050626, end: 20050701
  5. ATAZANAVIR [Concomitant]
  6. RITONAVIR [Concomitant]
  7. EFAVIRENZ [Concomitant]
  8. AMPHOTERICIN B [Concomitant]

REACTIONS (1)
  - BLOOD CREATININE INCREASED [None]
